FAERS Safety Report 4928878-3 (Version None)
Quarter: 2006Q1

REPORT INFORMATION
  Report Type: 
  Country: None (occurrence: None)
  Receive Date: 20060223
  Receipt Date: 20060213
  Transmission Date: 20060701
  Serious: Yes (Death, Life-Threatening, Disabling, Other)
  Sender: FDA-Public Use
  Company Number: 2006US000060

PATIENT
  Age: 16 Year
  Sex: Male

DRUGS (6)
  1. AMBISOME [Suspect]
     Indication: MUCORMYCOSIS
     Dosage: 445 MG, UID/QD, IV NOS; 550 UID/QD, IV NOS
     Route: 042
     Dates: start: 20050905, end: 20051210
  2. AMBISOME [Suspect]
     Indication: MUCORMYCOSIS
     Dosage: 445 MG, UID/QD, IV NOS; 550 UID/QD, IV NOS
     Route: 042
     Dates: start: 20051211, end: 20051213
  3. POSACONAZOLE [Suspect]
     Indication: SYSTEMIC MYCOSIS
     Dosage: 200 MG, QID, ORAL
     Route: 048
     Dates: start: 20051208
  4. ABELCET [Suspect]
     Indication: MUCORMYCOSIS
     Dosage: 550 MG, UID/QD, IV NOS
     Route: 042
     Dates: start: 20051214
  5. PROTONIX [Concomitant]
  6. METHYLPREDNISOLONE [Concomitant]

REACTIONS (7)
  - ACUTE RESPIRATORY DISTRESS SYNDROME [None]
  - CATHETER RELATED COMPLICATION [None]
  - ENTEROCOCCAL SEPSIS [None]
  - GRAFT VERSUS HOST DISEASE [None]
  - LIVER FUNCTION TEST ABNORMAL [None]
  - PSEUDOMONAL SEPSIS [None]
  - SEPSIS SYNDROME [None]
